FAERS Safety Report 24838566 (Version 2)
Quarter: 2025Q2

REPORT INFORMATION
  Report Type: Report from Study
  Country: ID (occurrence: ID)
  Receive Date: 20250113
  Receipt Date: 20250507
  Transmission Date: 20250717
  Serious: Yes (Death, Other)
  Sender: ALEXION PHARMACEUTICALS
  Company Number: ID-AstraZeneca-CH-00782804A

PATIENT
  Age: 81 Year

DRUGS (1)
  1. DURVALUMAB [Suspect]
     Active Substance: DURVALUMAB

REACTIONS (1)
  - Death [Fatal]
